FAERS Safety Report 4715273-5 (Version None)
Quarter: 2005Q3

REPORT INFORMATION
  Report Type: 
  Country: None (occurrence: None)
  Receive Date: 20050715
  Receipt Date: 20050630
  Transmission Date: 20060218
  Serious: Yes (Other)
  Sender: FDA-Public Use
  Company Number: BR-JNJFOC-20050702871

PATIENT
  Age: 33 Year
  Sex: Female
  Weight: 48 kg

DRUGS (3)
  1. TYLENOL [Suspect]
  2. TYLENOL [Suspect]
  3. NORTREL 7/7/7 [Concomitant]

REACTIONS (4)
  - DIZZINESS [None]
  - HYPERSOMNIA [None]
  - HYPOAESTHESIA ORAL [None]
  - SYNCOPE [None]
